FAERS Safety Report 5409930-5 (Version None)
Quarter: 2007Q3

REPORT INFORMATION
  Report Type: 
  Country: None (occurrence: None)
  Receive Date: 20070809
  Receipt Date: 20070808
  Transmission Date: 20080115
  Serious: Yes (Other)
  Sender: FDA-Public Use
  Company Number: GB-BRISTOL-MYERS SQUIBB COMPANY-13711312

PATIENT
  Sex: Male

DRUGS (6)
  1. HYDREA [Suspect]
     Indication: SICKLE CELL ANAEMIA WITH CRISIS
     Route: 048
     Dates: start: 19980801
  2. PENICILLIN [Concomitant]
     Route: 048
  3. FOLIC ACID [Concomitant]
     Route: 048
  4. PARACETAMOL [Concomitant]
  5. IBUPROFEN TABLETS [Concomitant]
  6. CODEINE SUL TAB [Concomitant]

REACTIONS (3)
  - HYPOAESTHESIA [None]
  - PARAESTHESIA [None]
  - TREATMENT NONCOMPLIANCE [None]
